FAERS Safety Report 8273577-6 (Version None)
Quarter: 2012Q2

REPORT INFORMATION
  Report Type: 
  Country: None (occurrence: None)
  Receive Date: 20120409
  Receipt Date: 20120409
  Transmission Date: 20120825
  Serious: Yes (Life-Threatening, Hospitalization)
  Sender: FDA-Public Use
  Company Number: None

PATIENT
  Age: 62 Year
  Weight: 72.2 kg

DRUGS (1)
  1. ENOXAPARIN [Suspect]
     Indication: ANTIPHOSPHOLIPID SYNDROME
     Dosage: 120 MG EVERY DAY SQ
     Route: 058
     Dates: start: 20110503, end: 20110523

REACTIONS (1)
  - THROMBOCYTOPENIA [None]
